FAERS Safety Report 14146392 (Version 3)
Quarter: 2017Q4

REPORT INFORMATION
  Report Type: Report from Study
  Country: US (occurrence: US)
  Receive Date: 20171031
  Receipt Date: 20171218
  Transmission Date: 20180321
  Serious: Yes (Other)
  Sender: FDA-Public Use
  Company Number: US-PFIZER INC-2017407959

PATIENT
  Age: 83 Year
  Sex: Male

DRUGS (6)
  1. SUTENT [Suspect]
     Active Substance: SUNITINIB MALATE
     Indication: RENAL CELL CARCINOMA
     Dosage: 37.5 MG, CYCLIC (DAILY FOR 2 WEEKS ON AND 1 WEEK OFF)
     Route: 048
     Dates: start: 20170915, end: 20170916
  2. SUTENT [Suspect]
     Active Substance: SUNITINIB MALATE
     Dosage: 37.5 MG, ALTERNATE DAY (EVERY OTHER DAY)
     Route: 048
     Dates: start: 20170917
  3. SUTENT [Suspect]
     Active Substance: SUNITINIB MALATE
     Dosage: 25 MG, CYCLIC (DAILY FOR 2 WEEKS ON AND 1 WEEK OFF)
     Route: 048
     Dates: start: 20171005
  4. SUTENT [Suspect]
     Active Substance: SUNITINIB MALATE
     Dosage: 25 MG (DAILY 2 WEEK ON AND 1 WEEK OFF)
     Route: 048
     Dates: start: 20170915, end: 20171115
  5. SUTENT [Suspect]
     Active Substance: SUNITINIB MALATE
     Dosage: 37.5 MG, ALTERNATE DAY (EVERY OTHER DAY)
     Route: 048
     Dates: start: 20170915, end: 20171004
  6. SUTENT [Suspect]
     Active Substance: SUNITINIB MALATE
     Dosage: 25 MG, CYCLIC (DAILY FOR 2 WEEKS ON AND 1 WEEK OFF)
     Route: 048
     Dates: start: 20170914

REACTIONS (12)
  - Dysgeusia [Unknown]
  - Neoplasm progression [Unknown]
  - Hair growth abnormal [Unknown]
  - Diarrhoea [Recovering/Resolving]
  - Fatigue [Not Recovered/Not Resolved]
  - Condition aggravated [Not Recovered/Not Resolved]
  - Hypoaesthesia [Unknown]
  - Abdominal pain [Recovering/Resolving]
  - Sleep disorder [Unknown]
  - Bone marrow failure [Unknown]
  - Pain in extremity [Unknown]
  - Asthenia [Recovering/Resolving]

NARRATIVE: CASE EVENT DATE: 2017
